FAERS Safety Report 25451163 (Version 1)
Quarter: 2025Q2

REPORT INFORMATION
  Report Type: Spontaneous
  Country: JP (occurrence: JP)
  Receive Date: 20250618
  Receipt Date: 20250618
  Transmission Date: 20250717
  Serious: Yes (Death, Other)
  Sender: MERCK SHARP & DOHME LLC
  Company Number: JP-009507513-2288837

PATIENT
  Sex: Female

DRUGS (1)
  1. KEYTRUDA [Suspect]
     Active Substance: PEMBROLIZUMAB
     Indication: Triple negative breast cancer
     Route: 041

REACTIONS (17)
  - Illness [Fatal]
  - Off label use [Unknown]
  - Immune-mediated lung disease [Unknown]
  - Immune-mediated pancreatitis [Unknown]
  - Malignant neoplasm progression [Unknown]
  - Therapy partial responder [Unknown]
  - Malignant neoplasm progression [Unknown]
  - Immune-mediated adrenal insufficiency [Unknown]
  - Off label use [Unknown]
  - Off label use [Unknown]
  - Platelet count decreased [Unknown]
  - Fulminant type 1 diabetes mellitus [Unknown]
  - Malignant neoplasm progression [Unknown]
  - Immune-mediated dermatitis [Unknown]
  - Immune-mediated enterocolitis [Unknown]
  - Therapy partial responder [Unknown]
  - Immune-mediated adverse reaction [Unknown]
